FAERS Safety Report 19882612 (Version 1)
Quarter: 2021Q3

REPORT INFORMATION
  Report Type: Spontaneous
  Country: US (occurrence: US)
  Receive Date: 20210924
  Receipt Date: 20210924
  Transmission Date: 20211014
  Serious: No
  Sender: FDA-Public Use
  Company Number: US-SA-2021SA311918

PATIENT
  Sex: Female

DRUGS (15)
  1. ASPIRINE [Concomitant]
     Active Substance: ASPIRIN
     Dosage: 81 CHE
  2. PAXIL [PIROXICAM] [Concomitant]
     Active Substance: PIROXICAM
  3. TECFIDERA [Concomitant]
     Active Substance: DIMETHYL FUMARATE
  4. LEVOTHYROXINE SODIUM. [Concomitant]
     Active Substance: LEVOTHYROXINE SODIUM
  5. SUMATRIPTAN. [Concomitant]
     Active Substance: SUMATRIPTAN
  6. PERCOCET [Concomitant]
     Active Substance: ACETAMINOPHEN\OXYCODONE HYDROCHLORIDE
  7. ABILIFY [Concomitant]
     Active Substance: ARIPIPRAZOLE
     Dosage: UNK
  8. LISINOPRIL. [Concomitant]
     Active Substance: LISINOPRIL
  9. LUNESTA [Concomitant]
     Active Substance: ESZOPICLONE
  10. PRILOSEC [Concomitant]
     Active Substance: OMEPRAZOLE MAGNESIUM
  11. VISTARIL [Concomitant]
     Active Substance: HYDROXYZINE PAMOATE
  12. LYRICA [Concomitant]
     Active Substance: PREGABALIN
  13. AUBAGIO [Suspect]
     Active Substance: TERIFLUNOMIDE
     Indication: MULTIPLE SCLEROSIS
     Dosage: 14 MG, QD
     Route: 048
  14. RITALIN [Concomitant]
     Active Substance: METHYLPHENIDATE HYDROCHLORIDE
     Dosage: UNK
  15. KLONOPIN [Concomitant]
     Active Substance: CLONAZEPAM

REACTIONS (1)
  - Depression [Unknown]
